FAERS Safety Report 10679846 (Version 2)
Quarter: 2015Q1

REPORT INFORMATION
  Report Type: Spontaneous
  Country: US (occurrence: US)
  Receive Date: 20141229
  Receipt Date: 20150205
  Transmission Date: 20150720
  Serious: No
  Sender: FDA-Public Use
  Company Number: US-PFIZER INC-2014352478

PATIENT
  Age: 56 Year
  Sex: Female
  Weight: 73 kg

DRUGS (8)
  1. MELATONIN [Concomitant]
     Active Substance: MELATONIN
     Indication: SLEEP DISORDER
     Dosage: 5 MG, UNK
  2. CHANTIX [Suspect]
     Active Substance: VARENICLINE TARTRATE
     Dosage: 1 MG, 2X/DAY
     Route: 048
     Dates: start: 2014
  3. OXYCODONE [Concomitant]
     Active Substance: OXYCODONE
     Dosage: 7.5 MG, 3X/DAY
  4. CHANTIX [Suspect]
     Active Substance: VARENICLINE TARTRATE
     Indication: SMOKING CESSATION THERAPY
     Dosage: UNK
     Route: 048
  5. BUSPIRONE [Concomitant]
     Active Substance: BUSPIRONE HYDROCHLORIDE
     Indication: ANXIETY
     Dosage: 5 MG, 2X/DAY TOOK IT THE SAME TIME AS VARENICLINE TARTRATE IN THE MORNING AND NIGHT
     Dates: start: 2014
  6. OPANA [Concomitant]
     Active Substance: OXYMORPHONE HYDROCHLORIDE
     Dosage: 15 MG, 2X/DAY
  7. GABAPENTIN. [Concomitant]
     Active Substance: GABAPENTIN
     Dosage: 600 MG, 2X/DAY
  8. VALERIAN ROOT [Concomitant]
     Active Substance: VALERIAN
     Indication: SLEEP DISORDER
     Dosage: UNK, 1X/DAY (AT NIGHT)

REACTIONS (7)
  - Anger [Recovered/Resolved]
  - Abnormal dreams [Recovered/Resolved]
  - Nightmare [Recovered/Resolved]
  - Insomnia [Recovered/Resolved]
  - Agitation [Recovered/Resolved]
  - Constipation [Not Recovered/Not Resolved]
  - Personality change [Recovered/Resolved]

NARRATIVE: CASE EVENT DATE: 2014
